FAERS Safety Report 9063772 (Version 1)
Quarter: 2013Q1

REPORT INFORMATION
  Report Type: Spontaneous
  Country: US (occurrence: US)
  Receive Date: 20130129
  Receipt Date: 20130129
  Transmission Date: 20140127
  Serious: No
  Sender: FDA-Public Use
  Company Number: US-ABBOTT-12P-163-0945040-00

PATIENT
  Sex: Female
  Weight: 50.85 kg

DRUGS (4)
  1. HUMIRA 40 MG/0.8 ML PEN [Suspect]
     Indication: CROHN^S DISEASE
     Route: 058
  2. B-12 [Concomitant]
     Indication: VITAMIN SUPPLEMENTATION
  3. YAZ [Concomitant]
     Indication: CONTRACEPTION
  4. AZATHIOPRINE [Concomitant]
     Indication: CROHN^S DISEASE

REACTIONS (1)
  - Anxiety [Not Recovered/Not Resolved]
